FAERS Safety Report 9059700 (Version 6)
Quarter: 2013Q4

REPORT INFORMATION
  Report Type: Spontaneous
  Country: US (occurrence: US)
  Receive Date: 20130212
  Receipt Date: 20131106
  Transmission Date: 20140711
  Serious: No
  Sender: FDA-Public Use
  Company Number: US-009507513-1301USA004931

PATIENT
  Age: 69 Year
  Sex: Female

DRUGS (8)
  1. VICTRELIS [Suspect]
     Indication: HEPATITIS C
     Dosage: 800 MG, TID
     Route: 048
     Dates: start: 20121209, end: 20130518
  2. VICTRELIS [Suspect]
     Dosage: 800 MG, TID
     Route: 048
     Dates: start: 20130522, end: 20130920
  3. PEGINTRON [Suspect]
     Indication: HEPATITIS C
     Dosage: 80 MICROGRAM, QW
     Route: 058
     Dates: start: 20121111, end: 20130920
  4. RIBAPAK [Suspect]
     Indication: HEPATITIS C
     Dosage: UNK
     Route: 048
     Dates: start: 20121111, end: 20130920
  5. CITALOPRAM [Concomitant]
  6. AMLODIPINE [Concomitant]
  7. BENAZEPRIL HYDROCHLORIDE [Concomitant]
  8. CELEXA [Concomitant]

REACTIONS (20)
  - Oral mucosal blistering [Recovered/Resolved]
  - Increased tendency to bruise [Unknown]
  - Weight decreased [Recovering/Resolving]
  - Dyspnoea [Recovering/Resolving]
  - Face oedema [Recovered/Resolved]
  - Influenza like illness [Unknown]
  - Weight decreased [Unknown]
  - Anaemia [Recovering/Resolving]
  - Anaemia [Unknown]
  - Anaemia [Recovered/Resolved]
  - Anaemia [Recovering/Resolving]
  - Nausea [Recovering/Resolving]
  - Fatigue [Recovering/Resolving]
  - Diarrhoea [Recovering/Resolving]
  - Haemoglobin decreased [Unknown]
  - Haemoglobin decreased [Unknown]
  - Haemoglobin decreased [Unknown]
  - Fatigue [Unknown]
  - Dysgeusia [Unknown]
  - Dry mouth [Unknown]
